FAERS Safety Report 11403479 (Version 2)
Quarter: 2015Q3

REPORT INFORMATION
  Report Type: Spontaneous
  Country: US (occurrence: US)
  Receive Date: 20150821
  Receipt Date: 20150922
  Transmission Date: 20151125
  Serious: No
  Sender: FDA-Public Use
  Company Number: US-JNJFOC-20150811531

PATIENT
  Age: 83 Year
  Sex: Female
  Weight: 69.85 kg

DRUGS (2)
  1. FENTANYL TRANSDERMAL SYSTEM [Suspect]
     Active Substance: FENTANYL
     Indication: SPONDYLITIS
     Route: 062
     Dates: start: 2012
  2. FENTANYL TRANSDERMAL SYSTEM [Suspect]
     Active Substance: FENTANYL
     Indication: SPINAL COLUMN STENOSIS
     Route: 062
     Dates: start: 2012

REACTIONS (3)
  - Wrong technique in product usage process [Unknown]
  - Poor quality drug administered [Unknown]
  - Product quality issue [Unknown]

NARRATIVE: CASE EVENT DATE: 20150811
